FAERS Safety Report 4913640-8 (Version None)
Quarter: 2006Q1

REPORT INFORMATION
  Report Type: 
  Country: None (occurrence: None)
  Receive Date: 20060213
  Receipt Date: 20060131
  Transmission Date: 20060701
  Serious: Yes (Hospitalization)
  Sender: FDA-Public Use
  Company Number: CIP05003015

PATIENT
  Age: 80 Year
  Sex: Male

DRUGS (2)
  1. DANTRIUM [Suspect]
     Dosage: ORAL
     Route: 048
  2. ANALGESICS [Concomitant]

REACTIONS (2)
  - PYREXIA [None]
  - RHABDOMYOLYSIS [None]
